FAERS Safety Report 10588362 (Version 1)
Quarter: 2014Q4

REPORT INFORMATION
  Report Type: Spontaneous
  Country: BR (occurrence: BR)
  Receive Date: 20141117
  Receipt Date: 20141117
  Transmission Date: 20150529
  Serious: Yes (Hospitalization, Other)
  Sender: FDA-Public Use
  Company Number: PHHY2014BR149524

PATIENT
  Age: 82 Year
  Sex: Female

DRUGS (1)
  1. STALEVO [Suspect]
     Active Substance: CARBIDOPA\ENTACAPONE\LEVODOPA
     Indication: PARKINSON^S DISEASE
     Dosage: 0.5 DF, UNK (THE PATIENT USED ONE TABLET BROKEN INTO FOUR PARTS)
     Route: 048

REACTIONS (10)
  - Blood pressure decreased [Recovered/Resolved]
  - Nasopharyngitis [Recovered/Resolved]
  - Vaginal haemorrhage [Not Recovered/Not Resolved]
  - Fear [Unknown]
  - Urinary tract infection [Not Recovered/Not Resolved]
  - Gait disturbance [Not Recovered/Not Resolved]
  - Abdominal pain [Not Recovered/Not Resolved]
  - Drug prescribing error [Unknown]
  - Syncope [Recovered/Resolved]
  - Pyrexia [Recovered/Resolved]
